FAERS Safety Report 6865999-2 (Version None)
Quarter: 2010Q3

REPORT INFORMATION
  Report Type: 
  Country: None (occurrence: None)
  Receive Date: 20100719
  Receipt Date: 20100706
  Transmission Date: 20110219
  Serious: Yes (Other)
  Sender: FDA-Public Use
  Company Number: B0665348A

PATIENT
  Age: 24 Year
  Sex: Female
  Weight: 26.9437 kg

DRUGS (2)
  1. ERYTHROMYCIN (FORMULATION UNKNOWN) (ERYTHROMYCIN) (GENERIC) [Suspect]
     Indication: ANTIBIOTIC THERAPY
  2. COUGH MEDICATION (COUGH MEDICATION) (FORMULATION UNKNOWN) [Suspect]
     Indication: COUGH

REACTIONS (2)
  - ABORTION INDUCED [None]
  - DRUG EXPOSURE DURING PREGNANCY [None]
